FAERS Safety Report 5329484-1 (Version None)
Quarter: 2007Q2

REPORT INFORMATION
  Report Type: 
  Country: None (occurrence: None)
  Receive Date: 20070221
  Receipt Date: 20060427
  Transmission Date: 20071010
  Serious: Yes (Other)
  Sender: FDA-Public Use
  Company Number: BDI-008188

PATIENT
  Age: 32 Year
  Sex: Female

DRUGS (2)
  1. ISOVUE-370 [Suspect]
     Indication: ANGIOGRAM
     Dosage: 100 ML ONCE IV
     Route: 042
     Dates: start: 20060427, end: 20060427
  2. ISOVUE-370 [Suspect]
     Indication: HEADACHE
     Dosage: 100 ML ONCE IV
     Route: 042
     Dates: start: 20060427, end: 20060427

REACTIONS (2)
  - DYSPNOEA [None]
  - TACHYCARDIA [None]
